FAERS Safety Report 6297331-X (Version None)
Quarter: 2009Q3

REPORT INFORMATION
  Report Type: 
  Country: None (occurrence: None)
  Receive Date: 20090805
  Receipt Date: 20071119
  Transmission Date: 20100115
  Serious: Yes (Other)
  Sender: FDA-Public Use
  Company Number: US-ASTRAZENECA-2006UW02714

PATIENT
  Age: 653 Month
  Sex: Male
  Weight: 108.4 kg

DRUGS (27)
  1. SEROQUEL [Suspect]
     Indication: SLEEP DISORDER
     Dosage: 100 TO 400 MG
     Route: 048
     Dates: start: 19990101, end: 20020101
  2. SEROQUEL [Suspect]
     Indication: NERVOUSNESS
     Dosage: 100 TO 400 MG
     Route: 048
     Dates: start: 19990101, end: 20020101
  3. SEROQUEL [Suspect]
     Indication: ANXIETY
     Dosage: 100 TO 400 MG
     Route: 048
     Dates: start: 19990101, end: 20020101
  4. SEROQUEL [Suspect]
     Indication: PANIC ATTACK
     Dosage: 100 TO 400 MG
     Route: 048
     Dates: start: 19990101, end: 20020101
  5. SEROQUEL [Suspect]
     Dosage: 25-800 MG
     Route: 048
     Dates: start: 19990122
  6. SEROQUEL [Suspect]
     Dosage: 25-800 MG
     Route: 048
     Dates: start: 19990122
  7. SEROQUEL [Suspect]
     Dosage: 25-800 MG
     Route: 048
     Dates: start: 19990122
  8. SEROQUEL [Suspect]
     Dosage: 25-800 MG
     Route: 048
     Dates: start: 19990122
  9. ZYPREXA [Suspect]
     Dates: start: 20020101, end: 20040601
  10. CLOZARIL [Concomitant]
  11. RISPERDAL [Concomitant]
     Dosage: 0.25 TO 1 MG
     Dates: start: 20010503, end: 20010821
  12. THORAZINE [Concomitant]
  13. LEXAPRO [Concomitant]
  14. CLONAZEPAM [Concomitant]
  15. TRAZODONE HCL [Concomitant]
  16. SERTRALINE [Concomitant]
  17. VISTARIL [Concomitant]
     Indication: PANIC ATTACK
     Dosage: ONE TO FOUR AT H.S.
     Dates: start: 19990122
  18. TRANXENE [Concomitant]
     Dosage: 15.0-22.5 MG
     Dates: start: 19931011
  19. PROZAC [Concomitant]
     Dosage: 20-40 MG
     Route: 048
     Dates: start: 19931011
  20. TOPAMAX [Concomitant]
     Dates: start: 20010222
  21. DYAZIDE [Concomitant]
     Dates: start: 20010821
  22. POTASSIUM CHLORIDE [Concomitant]
     Dates: start: 20010821
  23. TENORMIN [Concomitant]
     Dosage: 25-100 MG, DAILY
     Dates: start: 19921210
  24. UNIVASC [Concomitant]
     Dates: start: 20010821
  25. GLUCOTROL [Concomitant]
     Dates: start: 20010821
  26. TRILEPTAL [Concomitant]
     Route: 048
     Dates: start: 20010821
  27. PAXIL [Concomitant]
     Dates: start: 20010821

REACTIONS (4)
  - DIABETES MELLITUS [None]
  - DIABETIC NEPHROPATHY [None]
  - DIABETIC NEUROPATHY [None]
  - MULTIPLE INJURIES [None]
